FAERS Safety Report 10053906 (Version 3)
Quarter: 2014Q3

REPORT INFORMATION
  Report Type: Spontaneous
  Country: US (occurrence: US)
  Receive Date: 20140402
  Receipt Date: 20140916
  Transmission Date: 20150326
  Serious: No
  Sender: FDA-Public Use
  Company Number: US-AMGEN-USASP2013091202

PATIENT
  Age: 36 Year
  Sex: Female
  Weight: 63.49 kg

DRUGS (3)
  1. ENBREL [Suspect]
     Active Substance: ETANERCEPT
     Indication: RHEUMATOID ARTHRITIS
     Dosage: 50 MG, QWK
     Route: 065
     Dates: start: 201208
  2. GLYBURIDE. [Concomitant]
     Active Substance: GLYBURIDE
     Dosage: 2.5 MG, 1 PILL MORNING, 1/2 BED TIME EVERY DAY
     Dates: start: 20130702, end: 20130815
  3. PRENATAL                           /02014401/ [Concomitant]
     Dosage: UNK
     Dates: start: 201302, end: 201401

REACTIONS (1)
  - Infection [Unknown]
